FAERS Safety Report 5132313-2 (Version None)
Quarter: 2006Q4

REPORT INFORMATION
  Report Type: 
  Country: None (occurrence: None)
  Receive Date: 20061023
  Receipt Date: 20060726
  Transmission Date: 20070319
  Serious: Yes (Other)
  Sender: FDA-Public Use
  Company Number: PHBS2006ES11276

PATIENT
  Age: 60 Year
  Sex: Male

DRUGS (2)
  1. TORECAN [Suspect]
     Indication: NECK PAIN
     Dosage: UNK, UNK
     Route: 048
     Dates: start: 20051101
  2. TORECAN [Suspect]
     Route: 048
     Dates: start: 20060101

REACTIONS (1)
  - DEPRESSION [None]
